FAERS Safety Report 8850133 (Version 2)
Quarter: 2012Q4

REPORT INFORMATION
  Report Type: 
  Country: ES (occurrence: ES)
  Receive Date: 20121019
  Receipt Date: 20121120
  Transmission Date: 20130627
  Serious: Yes (Other)
  Sender: FDA-Public Use
  Company Number: ES-PFIZER INC-2012255999

PATIENT
  Age: 30 Year
  Sex: Female

DRUGS (5)
  1. DEPO-PROGEVERA [Suspect]
     Indication: CONTRACEPTION
     Dosage: 150 mg, UNK
     Route: 030
     Dates: start: 20121003
  2. CYMBALTA [Concomitant]
  3. DEPAMIDE [Concomitant]
  4. LAMICTAL [Concomitant]
  5. ZYPREXA [Concomitant]

REACTIONS (1)
  - Injection site abscess [Recovered/Resolved]
